FAERS Safety Report 7919253-8 (Version None)
Quarter: 2011Q4

REPORT INFORMATION
  Report Type: 
  Country: None (occurrence: None)
  Receive Date: 20111116
  Receipt Date: 20111116
  Transmission Date: 20120403
  Serious: No
  Sender: FDA-Public Use
  Company Number: None

PATIENT
  Age: 30 Year
  Sex: Female

DRUGS (2)
  1. MOXIFLOXACIN [Suspect]
     Dates: start: 20081122, end: 20081124
  2. CIPROFLOXACIN [Suspect]
     Dates: start: 20081117, end: 20081122

REACTIONS (1)
  - LIVER INJURY [None]
